FAERS Safety Report 10483470 (Version 2)
Quarter: 2014Q3

REPORT INFORMATION
  Report Type: Spontaneous
  Country: US (occurrence: US)
  Receive Date: 20140930
  Receipt Date: 20140930
  Transmission Date: 20150326
  Serious: No
  Sender: FDA-Public Use
  Company Number: US-ELI_LILLY_AND_COMPANY-US201407011822

PATIENT
  Sex: Female

DRUGS (2)
  1. EVISTA [Suspect]
     Active Substance: RALOXIFENE HYDROCHLORIDE
     Indication: OSTEOPENIA
     Dosage: 60 MG, QD
     Route: 065
     Dates: end: 20140730
  2. EVISTA [Suspect]
     Active Substance: RALOXIFENE HYDROCHLORIDE
     Dosage: UNK
     Route: 065
     Dates: start: 2014

REACTIONS (12)
  - Skin irritation [Unknown]
  - Nasal dryness [Not Recovered/Not Resolved]
  - Eye swelling [Unknown]
  - Dry skin [Unknown]
  - Periorbital disorder [Unknown]
  - Lip swelling [Unknown]
  - Swelling face [Not Recovered/Not Resolved]
  - Rash [Not Recovered/Not Resolved]
  - Lip dry [Unknown]
  - Thermal burn [Not Recovered/Not Resolved]
  - Muscle spasms [Unknown]
  - Peripheral swelling [Unknown]
